FAERS Safety Report 11298232 (Version 1)
Quarter: 2015Q3

REPORT INFORMATION
  Report Type: Spontaneous
  Country: US (occurrence: US)
  Receive Date: 20150722
  Receipt Date: 20150722
  Transmission Date: 20151125
  Serious: Yes (Life-Threatening, Other)
  Sender: FDA-Public Use
  Company Number: US-ELI_LILLY_AND_COMPANY-US201107001252

PATIENT
  Age: 79 Year
  Sex: Female
  Weight: 98.41 kg

DRUGS (3)
  1. EFFIENT [Suspect]
     Active Substance: PRASUGREL HYDROCHLORIDE
     Dosage: 10 MG, QD
     Route: 048
     Dates: end: 20110508
  2. ASA [Concomitant]
     Active Substance: ASPIRIN
     Dosage: UNK, UNKNOWN
     Route: 065
  3. EFFIENT [Suspect]
     Active Substance: PRASUGREL HYDROCHLORIDE
     Indication: PERCUTANEOUS CORONARY INTERVENTION
     Dosage: 60 MG, LOADING DOSE
     Route: 048
     Dates: start: 20110420

REACTIONS (1)
  - Haemorrhage intracranial [Unknown]

NARRATIVE: CASE EVENT DATE: 20110508
